FAERS Safety Report 12890487 (Version 2)
Quarter: 2016Q4

REPORT INFORMATION
  Report Type: Spontaneous
  Country: FR (occurrence: FR)
  Receive Date: 20161027
  Receipt Date: 20161107
  Transmission Date: 20170207
  Serious: Yes (Hospitalization)
  Sender: FDA-Public Use
  Company Number: FR-MYLANLABS-2016M1045203

PATIENT

DRUGS (4)
  1. TRAMADOL MYLAN [Suspect]
     Active Substance: TRAMADOL
     Indication: ABDOMINAL PAIN
     Dosage: 1 DF, QID
     Route: 048
     Dates: start: 20160709, end: 20160716
  2. PARACETAMOL [Concomitant]
     Active Substance: ACETAMINOPHEN
     Indication: ABDOMINAL PAIN
     Dosage: 1 G, TID
     Route: 048
     Dates: start: 20160709
  3. ESOMEPRAZOLE MYLAN [Suspect]
     Active Substance: ESOMEPRAZOLE
     Indication: ABDOMINAL PAIN
     Dosage: 40 MG, QD
     Route: 048
     Dates: start: 20160712, end: 20160716
  4. PANTOPRAZOLE [Suspect]
     Active Substance: PANTOPRAZOLE SODIUM
     Indication: ABDOMINAL PAIN
     Dosage: 40 MG, UNK
     Route: 042
     Dates: start: 20160712, end: 20160712

REACTIONS (5)
  - Persecutory delusion [Recovered/Resolved]
  - Hallucination, auditory [Unknown]
  - Psychomotor hyperactivity [Recovering/Resolving]
  - Mania [Unknown]
  - Hallucination [Recovered/Resolved]

NARRATIVE: CASE EVENT DATE: 20160713
